FAERS Safety Report 4944815-X (Version None)
Quarter: 2006Q1

REPORT INFORMATION
  Report Type: 
  Country: None (occurrence: None)
  Receive Date: 20060315
  Receipt Date: 20050606
  Transmission Date: 20060701
  Serious: Yes (Life-Threatening, Hospitalization, Disabling)
  Sender: FDA-Public Use
  Company Number: US-MERCK-0506USA00981

PATIENT
  Age: 70 Year
  Sex: Female
  Weight: 101 kg

DRUGS (4)
  1. VIOXX [Suspect]
     Indication: ARTHRALGIA
     Route: 048
     Dates: start: 20000621
  2. VIOXX [Suspect]
     Route: 048
     Dates: start: 20001118, end: 20001218
  3. VIOXX [Suspect]
     Route: 048
     Dates: start: 20000621
  4. VIOXX [Suspect]
     Route: 048
     Dates: start: 20001118, end: 20001218

REACTIONS (3)
  - ACUTE MYOCARDIAL INFARCTION [None]
  - ARTHROPATHY [None]
  - CARDIAC DISORDER [None]
